FAERS Safety Report 21741944 (Version 1)
Quarter: 2022Q4

REPORT INFORMATION
  Report Type: Spontaneous
  Country: US (occurrence: None)
  Receive Date: 20221215
  Receipt Date: 20221215
  Transmission Date: 20230113
  Serious: Yes (Death)
  Sender: FDA-Public Use
  Company Number: None

PATIENT
  Sex: Male

DRUGS (4)
  1. DALFAMPRIDINE [Suspect]
     Active Substance: DALFAMPRIDINE
     Indication: Multiple sclerosis
     Dosage: TAKE ONE TABLET BY MOUTH TWICE A DAY?
     Route: 048
     Dates: start: 20181016
  2. LISINOPRIL [Concomitant]
     Active Substance: LISINOPRIL
  3. MAYZENT [Concomitant]
     Active Substance: SIPONIMOD
  4. BACLOFEN [Concomitant]
     Active Substance: BACLOFEN

REACTIONS (1)
  - Death [None]
